FAERS Safety Report 4511695-6 (Version None)
Quarter: 2004Q4

REPORT INFORMATION
  Report Type: 
  Country: None (occurrence: None)
  Receive Date: 20041123
  Receipt Date: 20041123
  Transmission Date: 20050328
  Serious: Yes (Hospitalization)
  Sender: FDA-Public Use
  Company Number: None

PATIENT
  Age: 86 Year
  Sex: Female

DRUGS (8)
  1. LOSARTAN [Suspect]
     Indication: HYPERTENSION
     Dosage: 50 MG DAILY ORAL
     Route: 048
  2. ISOSORBIDE DINITRATE [Concomitant]
  3. FUROSEMIDE [Concomitant]
  4. QUINEINE SULFATE [Concomitant]
  5. LANSOPRAZOLE [Concomitant]
  6. ALBUTEROL [Concomitant]
  7. ATENOLOL [Concomitant]
  8. AMLODIPINE [Concomitant]

REACTIONS (3)
  - BRADYCARDIA [None]
  - CHEST PAIN [None]
  - DRUG CLEARANCE DECREASED [None]
